FAERS Safety Report 6282172-X (Version None)
Quarter: 2009Q3

REPORT INFORMATION
  Report Type: 
  Country: None (occurrence: None)
  Receive Date: 20090724
  Receipt Date: 20090626
  Transmission Date: 20100115
  Serious: No
  Sender: FDA-Public Use
  Company Number: US-BAYER-200924566NA

PATIENT
  Sex: Male

DRUGS (2)
  1. LEVITRA [Suspect]
     Indication: ERECTILE DYSFUNCTION
     Dosage: UNIT DOSE: 20 MG
  2. LEVITRA [Suspect]
     Dosage: UNIT DOSE: 20 MG

REACTIONS (3)
  - ABDOMINAL PAIN UPPER [None]
  - ERECTILE DYSFUNCTION [None]
  - FLATULENCE [None]
